FAERS Safety Report 19064479 (Version 2)
Quarter: 2021Q2

REPORT INFORMATION
  Report Type: Report from Study
  Country: US (occurrence: US)
  Receive Date: 20210326
  Receipt Date: 20210522
  Transmission Date: 20210717
  Serious: No
  Sender: FDA-Public Use
  Company Number: NVSC2021US070086

PATIENT
  Sex: Female

DRUGS (1)
  1. COSENTYX [Suspect]
     Active Substance: SECUKINUMAB
     Indication: PROSTATIC SPECIFIC ANTIGEN
     Dosage: 150 MG/KG, Q2W
     Route: 058
     Dates: start: 202011

REACTIONS (2)
  - Inappropriate schedule of product administration [Unknown]
  - Product prescribing error [Unknown]
